FAERS Safety Report 16936907 (Version 1)
Quarter: 2019Q4

REPORT INFORMATION
  Report Type: Spontaneous
  Country: DE (occurrence: DE)
  Receive Date: 20191018
  Receipt Date: 20191018
  Transmission Date: 20200122
  Serious: Yes (Congenital Anomaly, Other)
  Sender: FDA-Public Use
  Company Number: DE-BAUSCH-BL-2019-057945

PATIENT
  Age: 1 Day
  Sex: Female
  Weight: 2.72 kg

DRUGS (4)
  1. MONO-EMBOLEX [Concomitant]
     Active Substance: CERTOPARIN SODIUM
     Indication: PRODUCT USED FOR UNKNOWN INDICATION
     Dosage: 3000 (IE/D)
     Route: 064
     Dates: start: 20170422, end: 20180126
  2. L-THYROXIN JOD [Concomitant]
     Indication: PRODUCT USED FOR UNKNOWN INDICATION
     Dosage: 37.5 (MICROG/D ) / 75(MICROG/D )
     Route: 064
     Dates: start: 20170422, end: 20180126
  3. QUENSYL [Suspect]
     Active Substance: HYDROXYCHLOROQUINE
     Indication: PRODUCT USED FOR UNKNOWN INDICATION
     Dosage: 200 [MG/D]/VARYING DOSAGE BETWEEN 150 AND 200 MG DAILY
     Route: 064
     Dates: start: 20170422, end: 20180126
  4. PREDNISOLON [Suspect]
     Active Substance: PREDNISOLONE
     Indication: PRODUCT USED FOR UNKNOWN INDICATION
     Route: 064
     Dates: start: 20170422, end: 20180126

REACTIONS (4)
  - Foetal exposure during pregnancy [Unknown]
  - Developmental hip dysplasia [Unknown]
  - Small for dates baby [Recovered/Resolved]
  - Congenital hand malformation [Not Recovered/Not Resolved]

NARRATIVE: CASE EVENT DATE: 20180126
